FAERS Safety Report 11316248 (Version 1)
Quarter: 2015Q3

REPORT INFORMATION
  Report Type: Spontaneous
  Country: US (occurrence: None)
  Receive Date: 20150727
  Receipt Date: 20150727
  Transmission Date: 20151125
  Serious: Yes (Hospitalization)
  Sender: FDA-Public Use
  Company Number: None

PATIENT
  Age: 78 Year
  Sex: Male
  Weight: 63.41 kg

DRUGS (1)
  1. LENALIDOMIDE (CC-5013) [Suspect]
     Active Substance: LENALIDOMIDE
     Dates: end: 20150715

REACTIONS (6)
  - Abdominal pain [None]
  - Hyperkalaemia [None]
  - Diarrhoea [None]
  - Nausea [None]
  - Acute kidney injury [None]
  - Duodenitis [None]

NARRATIVE: CASE EVENT DATE: 20150708
